FAERS Safety Report 5677056-1 (Version None)
Quarter: 2008Q1

REPORT INFORMATION
  Report Type: 
  Country: None (occurrence: None)
  Receive Date: 20080318
  Receipt Date: 20080304
  Transmission Date: 20080703
  Serious: No
  Sender: FDA-Public Use
  Company Number: TPA2008A00276

PATIENT
  Age: 46 Year
  Sex: Female
  Weight: 44.9061 kg

DRUGS (3)
  1. ROZEREM [Suspect]
     Indication: INSOMNIA
     Dosage: 16 MG, QHS, PER ORAL : 8 MG, QHS, PER ORAL
     Route: 048
     Dates: start: 20080207, end: 20080229
  2. ROZEREM [Suspect]
     Indication: INSOMNIA
     Dosage: 16 MG, QHS, PER ORAL : 8 MG, QHS, PER ORAL
     Route: 048
     Dates: start: 20080229
  3. BUSPAR [Concomitant]

REACTIONS (3)
  - INCORRECT DOSE ADMINISTERED [None]
  - MIDDLE INSOMNIA [None]
  - SOMNOLENCE [None]
